FAERS Safety Report 25448423 (Version 1)
Quarter: 2025Q2

REPORT INFORMATION
  Report Type: Spontaneous
  Country: JP (occurrence: JP)
  Receive Date: 20250618
  Receipt Date: 20250618
  Transmission Date: 20250717
  Serious: Yes (Hospitalization, Other)
  Sender: BRISTOL-MYERS SQUIBB COMPANY
  Company Number: JP-TAIHO-2025-006128

PATIENT
  Age: 60 Year
  Sex: Male
  Weight: 59 kg

DRUGS (8)
  1. ABRAXANE [Suspect]
     Active Substance: PACLITAXEL
     Indication: Gastric cancer
     Dosage: 175 MG/DAY; ON DAYS 1, 8, AND 15; CYCLE 1?DAILY DOSE: 175 MILLIGRAM(S)
     Route: 041
     Dates: start: 20250220, end: 20250227
  2. ABRAXANE [Suspect]
     Active Substance: PACLITAXEL
     Dosage: AT A DOSE REDUCED TO 80% DOSE, CYCLE 2?DAILY DOSE: 140 MILLIGRAM(S)
     Route: 041
     Dates: start: 20250327, end: 20250327
  3. CYRAMZA [Suspect]
     Active Substance: RAMUCIRUMAB
     Indication: Gastric cancer
     Route: 041
     Dates: start: 20250220, end: 20250327
  4. ESOMEPRAZOLE [Concomitant]
     Active Substance: ESOMEPRAZOLE
     Indication: Product used for unknown indication
     Route: 048
     Dates: start: 20241018
  5. FOLIC ACID [Concomitant]
     Active Substance: FOLIC ACID
     Indication: Product used for unknown indication
     Route: 048
     Dates: start: 20241019, end: 20250407
  6. SODIUM FERROUS CITRATE [Concomitant]
     Active Substance: SODIUM FERROUS CITRATE
     Indication: Product used for unknown indication
     Route: 048
     Dates: start: 20241019
  7. URSODIOL [Concomitant]
     Active Substance: URSODIOL
     Indication: Product used for unknown indication
     Route: 048
     Dates: start: 20241025, end: 20250407
  8. REBAMIPIDE [Concomitant]
     Active Substance: REBAMIPIDE
     Indication: Product used for unknown indication
     Route: 048
     Dates: start: 20250227

REACTIONS (3)
  - Pulmonary toxicity [Recovering/Resolving]
  - Off label use [Unknown]
  - Neutrophil count decreased [Unknown]

NARRATIVE: CASE EVENT DATE: 20250220
